FAERS Safety Report 14067547 (Version 1)
Quarter: 2017Q4

REPORT INFORMATION
  Report Type: Spontaneous
  Country: US (occurrence: US)
  Receive Date: 20171008
  Receipt Date: 20171008
  Transmission Date: 20180321
  Serious: No
  Sender: FDA-Public Use
  Company Number: None

PATIENT
  Age: 42 Year
  Sex: Female
  Weight: 83.25 kg

DRUGS (5)
  1. MULTIVITAMIN WITH IRON [Concomitant]
     Active Substance: IRON\VITAMINS
  2. FISH OIL [Concomitant]
     Active Substance: FISH OIL
  3. METHOTREXATE. [Concomitant]
     Active Substance: METHOTREXATE
  4. ESCITALOPRAM [Concomitant]
     Active Substance: ESCITALOPRAM OXALATE
  5. ENTYVIO [Suspect]
     Active Substance: VEDOLIZUMAB
     Indication: CROHN^S DISEASE
     Dosage: ?          OTHER FREQUENCY:EVERY 7 WEEKS;?
     Route: 042
     Dates: end: 20161001

REACTIONS (3)
  - Feeling abnormal [None]
  - Thought blocking [None]
  - Aphasia [None]

NARRATIVE: CASE EVENT DATE: 20161001
